FAERS Safety Report 10884286 (Version 1)
Quarter: 2015Q1

REPORT INFORMATION
  Report Type: Spontaneous
  Country: US (occurrence: US)
  Receive Date: 20150304
  Receipt Date: 20150304
  Transmission Date: 20150721
  Serious: No
  Sender: FDA-Public Use
  Company Number: US-BAYER-2015-032358

PATIENT
  Sex: Female

DRUGS (1)
  1. SKYLA [Suspect]
     Active Substance: LEVONORGESTREL
     Indication: CONTRACEPTION
     Dosage: 14 MCG/24HR, CONT
     Route: 015
     Dates: start: 20150227

REACTIONS (3)
  - Procedural vomiting [Not Recovered/Not Resolved]
  - Feeling cold [Recovered/Resolved]
  - Procedural nausea [Not Recovered/Not Resolved]

NARRATIVE: CASE EVENT DATE: 20150227
